FAERS Safety Report 16621753 (Version 1)
Quarter: 2019Q3

REPORT INFORMATION
  Report Type: Spontaneous
  Country: US (occurrence: US)
  Receive Date: 20190723
  Receipt Date: 20190723
  Transmission Date: 20191004
  Serious: No
  Sender: FDA-Public Use
  Company Number: US-OTSUKA-2018_038375

PATIENT
  Age: 50 Year
  Sex: Female

DRUGS (1)
  1. REXULTI [Suspect]
     Active Substance: BREXPIPRAZOLE
     Indication: TRICHOTILLOMANIA
     Dosage: 2 MG, QD
     Route: 048

REACTIONS (2)
  - Drug effective for unapproved indication [Unknown]
  - Therapeutic response unexpected [Unknown]
